FAERS Safety Report 25222329 (Version 1)
Quarter: 2025Q2

REPORT INFORMATION
  Report Type: Report from Study
  Country: US (occurrence: US)
  Receive Date: 20250421
  Receipt Date: 20250421
  Transmission Date: 20250716
  Serious: Yes (Death, Other)
  Sender: GILEAD
  Company Number: US-GILEAD-2025-0711040

PATIENT
  Age: 41 Year

DRUGS (22)
  1. AZTREONAM LYSINE [Suspect]
     Active Substance: AZTREONAM LYSINE
     Indication: Cystic fibrosis lung
     Dosage: 75 MG, TID
     Route: 055
     Dates: start: 20180510
  2. ALBUTEROL [Concomitant]
     Active Substance: ALBUTEROL
  3. ADVAIR DISKU [Concomitant]
  4. AZITHROMYCIN [Concomitant]
     Active Substance: AZITHROMYCIN
  5. OXYMETAZOLINE HYDROCHLORIDE [Concomitant]
     Active Substance: OXYMETAZOLINE HYDROCHLORIDE
  6. CLOMIPRAMINE [Concomitant]
     Active Substance: CLOMIPRAMINE
  7. FAMOTIDINE [Concomitant]
     Active Substance: FAMOTIDINE
  8. FLUTICASONE [Concomitant]
     Active Substance: FLUTICASONE
  9. GABAPENTIN [Concomitant]
     Active Substance: GABAPENTIN
  10. HUMULIN NOS [Concomitant]
     Active Substance: INSULIN HUMAN
  11. IBUPROFEN [Concomitant]
     Active Substance: IBUPROFEN
  12. MIRTAZAPINE [Concomitant]
     Active Substance: MIRTAZAPINE
  13. OXYCODONE [Concomitant]
     Active Substance: OXYCODONE
  14. POLYETHYLENE GLYCOL, UNSPECIFIED [Concomitant]
     Active Substance: POLYETHYLENE GLYCOL, UNSPECIFIED
  15. PROGESTERONE [Concomitant]
     Active Substance: PROGESTERONE
  16. PULMOZYME [Concomitant]
     Active Substance: DORNASE ALFA
  17. TIZANIDINE [Concomitant]
     Active Substance: TIZANIDINE
  18. TRIKAFTA [Concomitant]
     Active Substance: ELEXACAFTOR\IVACAFTOR\TEZACAFTOR
  19. TOBRAMYCIN [Concomitant]
     Active Substance: TOBRAMYCIN
  20. ZIPRASIDONE [Concomitant]
     Active Substance: ZIPRASIDONE
  21. ZANAFLEX [Concomitant]
     Active Substance: TIZANIDINE HYDROCHLORIDE
  22. TYLENOL [Concomitant]
     Active Substance: ACETAMINOPHEN

REACTIONS (1)
  - Death [Fatal]

NARRATIVE: CASE EVENT DATE: 20250412
